FAERS Safety Report 20677693 (Version 3)
Quarter: 2022Q2

REPORT INFORMATION
  Report Type: Spontaneous
  Country: JP (occurrence: JP)
  Receive Date: 20220406
  Receipt Date: 20220531
  Transmission Date: 20220721
  Serious: Yes (Other)
  Sender: FDA-Public Use
  Company Number: JP-ASTELLAS-2022JP005338

PATIENT
  Age: 8 Decade
  Sex: Male

DRUGS (3)
  1. XOSPATA [Suspect]
     Active Substance: GILTERITINIB
     Indication: Acute promyelocytic leukaemia
     Route: 048
     Dates: start: 20211020, end: 202201
  2. CYTARABINE [Concomitant]
     Active Substance: CYTARABINE
     Indication: Acute promyelocytic leukaemia
     Dosage: UNK UNK, UNKNOWN FREQ.
     Route: 065
  3. VESANOID [Concomitant]
     Active Substance: TRETINOIN
     Indication: Acute promyelocytic leukaemia
     Dosage: UNK UNK, UNKNOWN FREQ.
     Route: 065

REACTIONS (5)
  - Acute promyelocytic leukaemia [Recovered/Resolved]
  - CSF test abnormal [Unknown]
  - Fibrin degradation products increased [Recovered/Resolved]
  - Blood lactate dehydrogenase increased [Recovered/Resolved]
  - Platelet count decreased [Recovered/Resolved]

NARRATIVE: CASE EVENT DATE: 20220101
